FAERS Safety Report 21002708 (Version 1)
Quarter: 2022Q2

REPORT INFORMATION
  Report Type: Spontaneous
  Country: US (occurrence: US)
  Receive Date: 20220624
  Receipt Date: 20220624
  Transmission Date: 20220721
  Serious: No
  Sender: FDA-Public Use
  Company Number: US-BioHaven Pharmaceuticals-2022BHV001458

PATIENT
  Age: 37 Year

DRUGS (2)
  1. NURTEC ODT [Suspect]
     Active Substance: RIMEGEPANT SULFATE
     Indication: Prophylaxis
     Dosage: 1 TABLET?PATIENT WAS TAKING EVERY OTHER DAY, AND THEN PATIENT SWITCHED TO ACUTE ON UNSPECIFIED DATE.
     Route: 048
     Dates: start: 20210205
  2. NURTEC ODT [Suspect]
     Active Substance: RIMEGEPANT SULFATE
     Indication: Migraine
     Dosage: 1 TABLET?PATIENT WAS TAKING EVERY OTHER DAY, AND THEN PATIENT SWITCHED TO ACUTE ON UNSPECIFIED DATE.
     Route: 048

REACTIONS (1)
  - Raynaud^s phenomenon [Unknown]
